FAERS Safety Report 6905346-0 (Version None)
Quarter: 2010Q3

REPORT INFORMATION
  Report Type: 
  Country: None (occurrence: None)
  Receive Date: 20100802
  Receipt Date: 20100715
  Transmission Date: 20110219
  Serious: Yes (Congenital Anomaly, Other)
  Sender: FDA-Public Use
  Company Number: 2010US-35903

PATIENT
  Age: 20 Year
  Sex: Female

DRUGS (8)
  1. ZIDOVUDINE [Suspect]
     Indication: ANTIVIRAL TREATMENT
     Dates: start: 20100104, end: 20100105
  2. PREZISTA [Suspect]
     Indication: ANTIVIRAL TREATMENT
     Dosage: 800 MG DAILY, ORAL; 1200 MG DAILY, ORAL; 12 MG DAILY, ORAL
     Route: 048
     Dates: start: 20090909, end: 20090916
  3. PREZISTA [Suspect]
     Indication: ANTIVIRAL TREATMENT
     Dosage: 800 MG DAILY, ORAL; 1200 MG DAILY, ORAL; 12 MG DAILY, ORAL
     Route: 048
     Dates: start: 20090917, end: 20091007
  4. PREZISTA [Suspect]
     Indication: ANTIVIRAL TREATMENT
     Dosage: 800 MG DAILY, ORAL; 1200 MG DAILY, ORAL; 12 MG DAILY, ORAL
     Route: 048
     Dates: start: 20091008, end: 20100324
  5. NORVIR [Suspect]
     Indication: ANTIVIRAL TREATMENT
     Dosage: 100 MG, DAILY, ORAL; 200 MG DAILY, ORAL; 200 MG DAILY, ORAL
     Route: 048
     Dates: start: 20090909, end: 20090916
  6. NORVIR [Suspect]
     Indication: ANTIVIRAL TREATMENT
     Dosage: 100 MG, DAILY, ORAL; 200 MG DAILY, ORAL; 200 MG DAILY, ORAL
     Route: 048
     Dates: start: 20090917, end: 20091007
  7. NORVIR [Suspect]
     Indication: ANTIVIRAL TREATMENT
     Dosage: 100 MG, DAILY, ORAL; 200 MG DAILY, ORAL; 200 MG DAILY, ORAL
     Route: 048
     Dates: start: 20091008
  8. COMBIVIR [Suspect]
     Indication: ANTIVIRAL TREATMENT
     Dates: start: 20090909

REACTIONS (3)
  - CONGENITAL ANOMALY IN OFFSPRING [None]
  - DRUG EXPOSURE DURING PREGNANCY [None]
  - PREGNANCY [None]
